FAERS Safety Report 7587124-5 (Version None)
Quarter: 2011Q3

REPORT INFORMATION
  Report Type: 
  Country: None (occurrence: None)
  Receive Date: 20110701
  Receipt Date: 20110628
  Transmission Date: 20111222
  Serious: Yes (Hospitalization)
  Sender: FDA-Public Use
  Company Number: DE-GENZYME-CAMP-1001719

PATIENT
  Age: 61 Year
  Sex: Male

DRUGS (6)
  1. VINCRISTINE [Suspect]
     Indication: T-CELL LYMPHOMA
     Dosage: 2 MG, QD
     Route: 042
     Dates: start: 20110418, end: 20110614
  2. CAMPATH [Suspect]
     Indication: T-CELL LYMPHOMA
     Dosage: 30 MG, QD
     Route: 058
     Dates: start: 20110418, end: 20110614
  3. PREDNISONE [Suspect]
     Indication: T-CELL LYMPHOMA
     Dosage: 100 MG, DAY 1-5
     Route: 048
     Dates: start: 20110418, end: 20110621
  4. DOXORUBICIN HCL [Suspect]
     Indication: T-CELL LYMPHOMA
     Dosage: 94 MG, QD
     Route: 042
     Dates: start: 20110418, end: 20110614
  5. FILGRASTIM [Suspect]
     Indication: T-CELL LYMPHOMA
     Dosage: 6 MG, QD
     Route: 058
     Dates: start: 20110421, end: 20110617
  6. CYCLOPHOSPHAMIDE [Suspect]
     Indication: T-CELL LYMPHOMA
     Dosage: 1400 MG, QD
     Route: 042
     Dates: start: 20110418, end: 20110614

REACTIONS (1)
  - ASTHENIA [None]
